FAERS Safety Report 7521773-5 (Version None)
Quarter: 2011Q2

REPORT INFORMATION
  Report Type: 
  Country: None (occurrence: None)
  Receive Date: 20110603
  Receipt Date: 20110530
  Transmission Date: 20111010
  Serious: Yes (Death)
  Sender: FDA-Public Use
  Company Number: PHHY2010MX68368

PATIENT
  Sex: Male

DRUGS (2)
  1. STALEVO 100 [Suspect]
     Indication: PARKINSON'S DISEASE
     Dosage: (200/100/25 MG) 2 DF PER DAY
     Dates: start: 20050101, end: 20100620
  2. STALEVO 100 [Suspect]
     Dosage: (200/50/12.5 MG) 2 DF PER DAY

REACTIONS (2)
  - DIARRHOEA [None]
  - RESPIRATORY ARREST [None]
